FAERS Safety Report 8838473 (Version 2)
Quarter: 2012Q4

REPORT INFORMATION
  Report Type: Report from Study
  Country: NL (occurrence: NL)
  Receive Date: 20121012
  Receipt Date: 20121116
  Transmission Date: 20130627
  Serious: Yes (Hospitalization)
  Sender: FDA-Public Use
  Company Number: NL-BAXTER-2012BAX019071

PATIENT
  Age: 67 Year
  Sex: Male
  Weight: 88 kg

DRUGS (10)
  1. ENDOXAN I.V., POEDER VOOR OPLOSSING VOOR INJECTIE 200, 500, 1000 MG [Suspect]
     Indication: MALIGNANT LYMPHOID NEOPLASM
     Route: 042
     Dates: start: 20120621
  2. DOXORUBICIN [Suspect]
     Indication: MALIGNANT LYMPHOID NEOPLASM
     Route: 042
     Dates: start: 20120621
  3. VINCRISTINE [Suspect]
     Indication: MALIGNANT LYMPHOID NEOPLASM
     Route: 042
     Dates: start: 20120621
  4. PREDNISOLONE [Suspect]
     Indication: MALIGNANT LYMPHOID NEOPLASM
     Route: 048
     Dates: start: 20120621
  5. PEGFILGRASTIM [Suspect]
     Indication: MALIGNANT LYMPHOID NEOPLASM
     Route: 058
     Dates: start: 20120622
  6. SODIUM [Concomitant]
     Indication: DRUG USE FOR UNKNOWN INDICATION
     Dosage: 40 CC/H
     Dates: start: 20120620
  7. SODIUM [Concomitant]
     Dosage: 20 CC/H
     Dates: start: 20120629
  8. SODIUM [Concomitant]
     Dosage: 30 CC/H
     Dates: start: 20120630
  9. SODIUM [Concomitant]
     Dosage: 30 CC/H
     Dates: start: 20120701
  10. SODIUM [Concomitant]
     Dosage: 20 CC/H
     Dates: start: 20120702

REACTIONS (1)
  - Fatigue [Recovered/Resolved]
